FAERS Safety Report 13113569 (Version 1)
Quarter: 2017Q1

REPORT INFORMATION
  Report Type: Spontaneous
  Country: GB (occurrence: GB)
  Receive Date: 20170113
  Receipt Date: 20170113
  Transmission Date: 20170428
  Serious: Yes (Hospitalization)
  Sender: FDA-Public Use
  Company Number: GB-PFIZER INC-2017009124

PATIENT
  Age: 48 Year

DRUGS (7)
  1. AMISULPRIDE [Concomitant]
     Active Substance: AMISULPRIDE
     Dosage: 200 MG, 1X/DAY, AT NIGHT
  2. SERTRALINE HCL [Suspect]
     Active Substance: SERTRALINE HYDROCHLORIDE
     Dosage: 150 MG, 1X/DAY
  3. PROCYCLIDINE [Concomitant]
     Active Substance: PROCYCLIDINE
     Dosage: MORNING AND NIGHT, 5 MG, 2X/DAY
  4. VITAMIN B COMPOUND STRONG [Concomitant]
     Dosage: EVERY MORNING, 1 DF, 1X/DAY
  5. SIMVASTATIN. [Concomitant]
     Active Substance: SIMVASTATIN
     Dosage: AT NIGHT, 40 MG, 1X/DAY
  6. CLOPIDOGREL [Concomitant]
     Active Substance: CLOPIDOGREL BISULFATE
     Dosage: MORNING, 75 MG, 1X/DAY
  7. THIAMINE. [Concomitant]
     Active Substance: THIAMINE
     Dosage: EVERY MORNING, 50 MG, 1X/DAY

REACTIONS (3)
  - Lethargy [Unknown]
  - Hyponatraemia [Recovered/Resolved]
  - Confusional state [Unknown]
